FAERS Safety Report 9845390 (Version 1)
Quarter: 2013Q4

REPORT INFORMATION
  Report Type: Spontaneous
  Country: US (occurrence: None)
  Receive Date: 20131219
  Receipt Date: 20131219
  Transmission Date: 20140711
  Serious: Yes (Hospitalization)
  Sender: FDA-Public Use
  Company Number: 163-20785-13101385

PATIENT
  Age: 57 Year
  Sex: Female

DRUGS (1)
  1. THALIDOMID [Suspect]
     Indication: BRAIN NEOPLASM MALIGNANT
     Dosage: 200 MG, 1 IN 1 D, PO
     Route: 048
     Dates: start: 20130829

REACTIONS (2)
  - Neutropenia [None]
  - Anaemia [None]
